FAERS Safety Report 4967525-1 (Version None)
Quarter: 2006Q2

REPORT INFORMATION
  Report Type: 
  Country: None (occurrence: None)
  Receive Date: 20060410
  Receipt Date: 20060405
  Transmission Date: 20061013
  Serious: Yes (Other)
  Sender: FDA-Public Use
  Company Number: US-GLAXOSMITHKLINE-A0600570A

PATIENT
  Age: 27 Year
  Sex: Female

DRUGS (4)
  1. ADVAIR DISKUS 100/50 [Suspect]
     Indication: ASTHMA
     Dosage: 1PUFF SEE DOSAGE TEXT
     Route: 055
     Dates: start: 20050101
  2. WELLBUTRIN XL [Concomitant]
     Indication: MOOD SWINGS
     Route: 065
  3. PRENATAL VITAMINS [Concomitant]
  4. TOPAMAX [Concomitant]

REACTIONS (6)
  - ASTHMA [None]
  - DRUG EXPOSURE DURING PREGNANCY [None]
  - PARAESTHESIA ORAL [None]
  - PHARMACEUTICAL PRODUCT COMPLAINT [None]
  - PREGNANCY [None]
  - SENSATION OF FOREIGN BODY [None]
